FAERS Safety Report 4694249-0 (Version None)
Quarter: 2005Q2

REPORT INFORMATION
  Report Type: 
  Country: None (occurrence: None)
  Receive Date: 20050620
  Receipt Date: 20050526
  Transmission Date: 20051028
  Serious: Yes (Hospitalization)
  Sender: FDA-Public Use
  Company Number: US-RB-1788-2005

PATIENT
  Sex: Female
  Weight: 70.82 kg

DRUGS (5)
  1. SUBOXONE [Suspect]
     Indication: DRUG DEPENDENCE
     Route: 060
     Dates: start: 20050214, end: 20050411
  2. VENLAFAXINE HCL [Concomitant]
     Indication: DEPRESSION
     Route: 048
  3. QUETIAPINE FUMARATE [Concomitant]
     Indication: MANIA
     Dosage: RANGED TO 150 MG PRN
     Route: 048
  4. HYDROCODONE BITARTRATE [Concomitant]
     Indication: PAIN
  5. ZOLPIDEM TARTRATE [Concomitant]
     Indication: SLEEP DISORDER
     Dates: start: 20050212, end: 20050225

REACTIONS (3)
  - ANHEDONIA [None]
  - DEPRESSED MOOD [None]
  - DEPRESSION [None]
